FAERS Safety Report 6316025-5 (Version None)
Quarter: 2009Q3

REPORT INFORMATION
  Report Type: 
  Country: None (occurrence: None)
  Receive Date: 20090810
  Receipt Date: 20090810
  Transmission Date: 20100115
  Serious: No
  Sender: FDA-Public Use
  Company Number: None

PATIENT

DRUGS (12)
  1. IMMUNE GLOBULIN INTRAVENOUS (HUMAN) [Suspect]
     Indication: GUILLAIN-BARRE SYNDROME
     Dosage: 30 GM IV DAILY
     Route: 042
     Dates: start: 20090706, end: 20090711
  2. IMMUNE GLOBULIN INTRAVENOUS (HUMAN) [Suspect]
     Indication: GUILLAIN-BARRE SYNDROME
     Dosage: 30 GM IV DAILY
     Route: 042
     Dates: start: 20090715, end: 20090720
  3. VANCOMYCIN HCL [Concomitant]
  4. CIPRO [Concomitant]
  5. FLAGYL [Concomitant]
  6. LANTUS [Concomitant]
  7. LOVENOX [Concomitant]
  8. PANTOPRAZOLE SODIUM [Concomitant]
  9. OXYBUTYNIN CHLORIDE [Concomitant]
  10. NYSTATIN [Concomitant]
  11. CIPRO [Concomitant]
  12. SENNA [Concomitant]

REACTIONS (2)
  - HAEMOLYSIS [None]
  - HAEMOLYTIC ANAEMIA [None]
